FAERS Safety Report 5211506-X (Version None)
Quarter: 2006Q4

REPORT INFORMATION
  Report Type: 
  Country: None (occurrence: None)
  Receive Date: 20061115
  Receipt Date: 20060719
  Transmission Date: 20070319
  Serious: No
  Sender: FDA-Public Use
  Company Number: 200610264BWH

PATIENT
  Age: 55 Year
  Sex: Male
  Weight: 91.173 kg

DRUGS (3)
  1. NEXAVAR [Suspect]
     Indication: RENAL CELL CARCINOMA STAGE UNSPECIFIED
     Dosage: SEE IMAGE
     Route: 048
     Dates: start: 20050901, end: 20060103
  2. NEXAVAR [Suspect]
     Indication: RENAL CELL CARCINOMA STAGE UNSPECIFIED
     Dosage: SEE IMAGE
     Route: 048
     Dates: start: 20060103
  3. HYDROCDOONE [Concomitant]

REACTIONS (6)
  - ABDOMINAL PAIN [None]
  - ALOPECIA [None]
  - DIARRHOEA [None]
  - HYPERTENSION [None]
  - PAIN IN EXTREMITY [None]
  - RASH [None]
